FAERS Safety Report 6759165-9 (Version None)
Quarter: 2010Q2

REPORT INFORMATION
  Report Type: 
  Country: None (occurrence: None)
  Receive Date: 20100524
  Receipt Date: 20100419
  Transmission Date: 20101027
  Serious: No
  Sender: FDA-Public Use
  Company Number: 010432

PATIENT
  Sex: Female
  Weight: 83.4 kg

DRUGS (12)
  1. CIMZIA [Suspect]
     Indication: CROHN'S DISEASE
     Dosage: (400 MG 1X/MONTH SUBCUTANEOUS)
     Route: 058
     Dates: start: 20100122
  2. ASACOL [Concomitant]
  3. JANUVIA [Concomitant]
  4. LANTUS [Concomitant]
  5. LEVOTHYROXINE SODIUM [Concomitant]
  6. ATENOLOL [Concomitant]
  7. ENALAPRIL MALEATE [Concomitant]
  8. GEMFIBROZIL [Concomitant]
  9. ZETIA [Concomitant]
  10. VENLAFAXINE [Concomitant]
  11. ESTRACE [Concomitant]
  12. MESALAMINE [Concomitant]

REACTIONS (2)
  - CROHN'S DISEASE [None]
  - DRUG INEFFECTIVE [None]
